FAERS Safety Report 12081452 (Version 11)
Quarter: 2018Q2

REPORT INFORMATION
  Report Type: Report from Study
  Country: PA (occurrence: PA)
  Receive Date: 20160216
  Receipt Date: 20180619
  Transmission Date: 20180711
  Serious: Yes (Other)
  Sender: FDA-Public Use
  Company Number: PHHY2015PA124726

PATIENT
  Sex: Female
  Weight: 72.56 kg

DRUGS (6)
  1. SANDOSTATIN LAR DEPOT [Suspect]
     Active Substance: OCTREOTIDE ACETATE
     Indication: ACROMEGALY
     Dosage: 40 MG, QMO
     Route: 030
     Dates: start: 2008
  2. SANDOSTATIN LAR DEPOT [Suspect]
     Active Substance: OCTREOTIDE ACETATE
     Dosage: 40 MG, UNK
     Route: 065
  3. CABERGOLINE. [Concomitant]
     Active Substance: CABERGOLINE
     Indication: PRODUCT USED FOR UNKNOWN INDICATION
     Route: 065
  4. SANDOSTATIN [Suspect]
     Active Substance: OCTREOTIDE ACETATE
     Indication: PRODUCT USED FOR UNKNOWN INDICATION
     Dosage: UNK UNK, QD
     Route: 065
  5. SANDOSTATIN LAR DEPOT [Suspect]
     Active Substance: OCTREOTIDE ACETATE
     Dosage: 20 MG, QMO
     Route: 065
     Dates: start: 2012
  6. SANDOSTATIN LAR DEPOT [Suspect]
     Active Substance: OCTREOTIDE ACETATE
     Dosage: UNK
     Route: 030
     Dates: start: 201602

REACTIONS (30)
  - Blood cholesterol increased [Unknown]
  - General physical health deterioration [Unknown]
  - Dysgraphia [Unknown]
  - Headache [Unknown]
  - Alopecia [Recovered/Resolved]
  - Meningioma [Unknown]
  - Wound secretion [Recovered/Resolved]
  - Balance disorder [Unknown]
  - Puncture site pain [Unknown]
  - Blood triglycerides increased [Unknown]
  - Blood growth hormone increased [Not Recovered/Not Resolved]
  - Hydrocephalus [Unknown]
  - Pineal neoplasm [Unknown]
  - Hyperhidrosis [Unknown]
  - Hormone level abnormal [Unknown]
  - Arthralgia [Unknown]
  - Face oedema [Unknown]
  - Gait disturbance [Unknown]
  - Nasopharyngitis [Recovering/Resolving]
  - Hypothyroidism [Unknown]
  - Hyperglycaemia [Recovering/Resolving]
  - Diabetes mellitus [Unknown]
  - Brain neoplasm [Unknown]
  - Movement disorder [Unknown]
  - Coordination abnormal [Unknown]
  - Feeling abnormal [Unknown]
  - Seborrhoea [Unknown]
  - Asthenia [Recovered/Resolved]
  - Fatigue [Unknown]
  - Dizziness [Unknown]

NARRATIVE: CASE EVENT DATE: 2012
